FAERS Safety Report 16713067 (Version 1)
Quarter: 2019Q3

REPORT INFORMATION
  Report Type: Spontaneous
  Country: GB (occurrence: GB)
  Receive Date: 20190817
  Receipt Date: 20190817
  Transmission Date: 20191004
  Serious: Yes (Other)
  Sender: FDA-Public Use
  Company Number: GB-009507513-1908GBR004653

PATIENT
  Sex: Male

DRUGS (10)
  1. HYDROXOCOBALAMIN [Suspect]
     Active Substance: HYDROXOCOBALAMIN
     Dosage: UNK (TOP UP DOSE)
     Route: 030
     Dates: start: 201904
  2. ADCAL (CALCIUM CARBONATE) [Suspect]
     Active Substance: CALCIUM CARBONATE
     Indication: OSTEOPOROSIS
     Dosage: 1 DOSAGE FORM UNK
     Route: 065
  3. ASPIRIN. [Suspect]
     Active Substance: ASPIRIN
     Indication: CARDIOVASCULAR DISORDER
     Dosage: 75 MG, QD
     Route: 065
  4. ROPINIROLE. [Suspect]
     Active Substance: ROPINIROLE
     Indication: PERIODIC LIMB MOVEMENT DISORDER
     Dosage: 6 MILLIGRAM, QD (2 MG, TID)
     Route: 065
  5. HYDROXOCOBALAMIN [Suspect]
     Active Substance: HYDROXOCOBALAMIN
     Indication: PRODUCT USED FOR UNKNOWN INDICATION
     Dosage: UNK (STANDARD LOADING DOSE)
     Route: 030
     Dates: start: 201901
  6. RISEDRONATE SODIUM. [Suspect]
     Active Substance: RISEDRONATE SODIUM
     Indication: OSTEOPOROSIS
     Dosage: 35 MG, QW
     Route: 065
  7. OMEPRAZOLE. [Suspect]
     Active Substance: OMEPRAZOLE
     Dosage: 20 MILLIGRAM, QD
     Route: 065
     Dates: start: 201812
  8. SIMVASTATIN. [Suspect]
     Active Substance: SIMVASTATIN
     Indication: CARDIOVASCULAR DISORDER
     Dosage: 40 MG, QD
     Route: 065
  9. OMEPRAZOLE. [Suspect]
     Active Substance: OMEPRAZOLE
     Indication: GASTROOESOPHAGEAL REFLUX DISEASE
     Dosage: 1 UNITS UNSPECIFIED, QD (UNK UNK, QD)
     Route: 065
     Dates: start: 1992, end: 201802
  10. LEUCOVORIN CALCIUM. [Suspect]
     Active Substance: LEUCOVORIN CALCIUM
     Indication: CARDIOVASCULAR DISORDER
     Dosage: 800 MG, QD
     Route: 065

REACTIONS (14)
  - Hand deformity [Unknown]
  - Asthenia [Unknown]
  - Cardiovascular disorder [Unknown]
  - Balance disorder [Unknown]
  - Somnolence [Unknown]
  - Peripheral sensorimotor neuropathy [Unknown]
  - Sensory loss [Unknown]
  - Treatment failure [Unknown]
  - Angina pectoris [Unknown]
  - Periodic limb movement disorder [Unknown]
  - Hypoaesthesia [Unknown]
  - Vitamin B12 deficiency [Unknown]
  - Fall [Unknown]
  - Exercise tolerance decreased [Unknown]

NARRATIVE: CASE EVENT DATE: 1992
